FAERS Safety Report 9833860 (Version 1)
Quarter: 2014Q1

REPORT INFORMATION
  Report Type: Spontaneous
  Country: US (occurrence: US)
  Receive Date: 20140122
  Receipt Date: 20140122
  Transmission Date: 20141002
  Serious: No
  Sender: FDA-Public Use
  Company Number: US-BIOGENIDEC-2014BI005168

PATIENT
  Age: 55 Year
  Sex: Female

DRUGS (17)
  1. TECFIDERA [Suspect]
     Indication: MULTIPLE SCLEROSIS
     Route: 048
     Dates: start: 201306
  2. ADDERALL [Concomitant]
  3. BUSPIRONE HCL [Concomitant]
  4. CALCIUM CARBONATE 500 [Concomitant]
  5. KLONOPIN [Concomitant]
  6. LIPITOR [Concomitant]
  7. ONDANSETRON HCL [Concomitant]
  8. PRILOSEC [Concomitant]
  9. PROMETHAZINE HCL [Concomitant]
  10. REGLAN [Concomitant]
  11. SEROQUEL [Concomitant]
  12. TRAMADOL HCL [Concomitant]
  13. TRAZODONE HCL [Concomitant]
  14. XANAX [Concomitant]
  15. ASPIRIN [Concomitant]
  16. GLYCERIN LAXATIVE [Concomitant]
  17. PEPTO-BISMOL [Concomitant]

REACTIONS (2)
  - Arthralgia [Unknown]
  - Weight decreased [Unknown]
